FAERS Safety Report 9790585 (Version 1)
Quarter: 2013Q4

REPORT INFORMATION
  Report Type: Report from Study
  Country: US (occurrence: US)
  Receive Date: 20131231
  Receipt Date: 20131231
  Transmission Date: 20140711
  Serious: Yes (Other)
  Sender: FDA-Public Use
  Company Number: US-JNJFOC-20131213999

PATIENT
  Age: 76 Year
  Sex: Female
  Weight: 67.13 kg

DRUGS (1)
  1. USTEKINUMAB [Suspect]
     Indication: PRODUCT USED FOR UNKNOWN INDICATION
     Route: 058
     Dates: start: 201312, end: 201312

REACTIONS (1)
  - Urticaria [Recovered/Resolved]
